FAERS Safety Report 9958768 (Version 1)
Quarter: 2014Q1

REPORT INFORMATION
  Report Type: Report from Study
  Country: US (occurrence: US)
  Receive Date: 20140305
  Receipt Date: 20140305
  Transmission Date: 20141002
  Serious: No
  Sender: FDA-Public Use
  Company Number: US-ABBVIE-13P-163-1103357-00

PATIENT
  Age: 58 Year
  Sex: Female

DRUGS (4)
  1. HUMIRA [Suspect]
     Indication: CROHN^S DISEASE
     Dates: start: 20130425
  2. LOMOTIL [Concomitant]
     Indication: DIARRHOEA
     Dosage: AS NEEDED
  3. HYOSCYAMINE [Concomitant]
     Indication: DIARRHOEA
     Dosage: AS NEEDED
  4. NORCO [Concomitant]
     Indication: ABDOMINAL PAIN
     Dosage: 5-325MG; AS NEEDED

REACTIONS (1)
  - Dermatitis contact [Not Recovered/Not Resolved]
